FAERS Safety Report 9975404 (Version 1)
Quarter: 2014Q1

REPORT INFORMATION
  Report Type: Report from Study
  Country: US (occurrence: US)
  Receive Date: 20140306
  Receipt Date: 20140306
  Transmission Date: 20141002
  Serious: No
  Sender: FDA-Public Use
  Company Number: US-ABBVIE-13P-163-1155739-00

PATIENT
  Age: 32 Year
  Sex: Female
  Weight: 56.75 kg

DRUGS (3)
  1. HUMIRA [Suspect]
     Indication: CROHN^S DISEASE
     Route: 058
     Dates: start: 2010, end: 2011
  2. HUMIRA [Suspect]
     Route: 058
     Dates: start: 201307
  3. FERROUS SULFATE [Concomitant]
     Indication: ANAEMIA

REACTIONS (4)
  - Dyshidrotic eczema [Not Recovered/Not Resolved]
  - Injection site urticaria [Not Recovered/Not Resolved]
  - Blister [Not Recovered/Not Resolved]
  - Injection site pain [Not Recovered/Not Resolved]
